FAERS Safety Report 5805837-X (Version None)
Quarter: 2008Q3

REPORT INFORMATION
  Report Type: 
  Country: None (occurrence: None)
  Receive Date: 20080708
  Receipt Date: 20080708
  Transmission Date: 20090109
  Serious: Yes (Hospitalization)
  Sender: FDA-Public Use
  Company Number: None

PATIENT
  Age: 74 Year
  Sex: Male
  Weight: 84 kg

DRUGS (2)
  1. GLIPIZIDE [Suspect]
     Indication: DIABETES MELLITUS
     Dosage: 10 MG BID PO
     Route: 048
     Dates: start: 20080310, end: 20080314
  2. ROSIGLITAZONE [Suspect]
     Dosage: 8 MG EVERY DAY PO
     Route: 048
     Dates: start: 20061101, end: 20080226

REACTIONS (7)
  - DIARRHOEA [None]
  - DIZZINESS [None]
  - HYPOGLYCAEMIA [None]
  - NAUSEA [None]
  - TREATMENT NONCOMPLIANCE [None]
  - UNRESPONSIVE TO STIMULI [None]
  - VOMITING [None]
